FAERS Safety Report 6058170-8 (Version None)
Quarter: 2009Q1

REPORT INFORMATION
  Report Type: 
  Country: None (occurrence: None)
  Receive Date: 20090126
  Receipt Date: 20081222
  Transmission Date: 20090719
  Serious: Yes (Life-Threatening, Hospitalization, Other)
  Sender: FDA-Public Use
  Company Number: CLOF-1000330

PATIENT
  Age: 51 Year
  Sex: Female

DRUGS (9)
  1. CLOLAR [Suspect]
     Indication: ACUTE LEUKAEMIA
     Dosage: 40 MG/M2, QDX5, INTRAVENOUS
     Route: 042
     Dates: start: 20081001, end: 20081005
  2. CYTARABINE [Suspect]
     Indication: ACUTE LEUKAEMIA
     Dosage: 1 G/M2, QDX5, INTRAVENOUS
     Route: 042
     Dates: start: 20081001, end: 20081005
  3. NEXAVAR [Concomitant]
  4. NEXIAM (ESOMEPRAZOLE) [Concomitant]
  5. UNASYN (AMPICILLIN SODIUM, SULBACTAM SODIUM) [Concomitant]
  6. HYDAL (HYDROMORPHONE HYDROCHLORIDE) [Concomitant]
  7. VALTREX [Concomitant]
  8. CIPROXIN (CIPROFLOXACIN LACTATE) [Concomitant]
  9. NOXAFIL [Concomitant]

REACTIONS (8)
  - BLAST CELL COUNT DECREASED [None]
  - DEHYDRATION [None]
  - EPIDERMOLYSIS [None]
  - HYPOPROTEINAEMIA [None]
  - LUNG INFECTION PSEUDOMONAL [None]
  - NEUTROPENIA [None]
  - PNEUMONIA PRIMARY ATYPICAL [None]
  - STAPHYLOCOCCAL INFECTION [None]
